FAERS Safety Report 12965285 (Version 1)
Quarter: 2016Q4

REPORT INFORMATION
  Report Type: Report from Study
  Country: None (occurrence: BR)
  Receive Date: 20161122
  Receipt Date: 20161122
  Transmission Date: 20170207
  Serious: Yes (Death, Other)
  Sender: FDA-Public Use
  Company Number: BR-ABBVIE-16P-020-1786249-00

PATIENT
  Sex: Female
  Weight: 80 kg

DRUGS (1)
  1. VENETOCLAX [Suspect]
     Active Substance: VENETOCLAX
     Indication: NON-HODGKIN^S LYMPHOMA
     Route: 048
     Dates: start: 20161102

REACTIONS (3)
  - Lung infiltration [Unknown]
  - Bronchial disorder [Unknown]
  - Non-Hodgkin^s lymphoma [Fatal]
